FAERS Safety Report 11881267 (Version 3)
Quarter: 2016Q2

REPORT INFORMATION
  Report Type: Spontaneous
  Country: US (occurrence: US)
  Receive Date: 20151231
  Receipt Date: 20160428
  Transmission Date: 20160815
  Serious: No
  Sender: FDA-Public Use
  Company Number: US-ASTRAZENECA-2015SF27542

PATIENT
  Sex: Female

DRUGS (4)
  1. PULMICORT FLEXHALER [Suspect]
     Active Substance: BUDESONIDE
     Indication: ASTHMA
     Dosage: 180 MCG TWO PUFFS DAILY
     Route: 055
  2. PULMICORT FLEXHALER [Suspect]
     Active Substance: BUDESONIDE
     Indication: ASTHMA
     Dosage: 180 MCG TWO PUFFS TWICE A DAY
     Route: 055
     Dates: start: 201109
  3. PULMICORT FLEXHALER [Suspect]
     Active Substance: BUDESONIDE
     Indication: ASTHMA
     Dosage: 180 MCG TWO PUFFS DAILY
     Route: 055
  4. PSORIASIS [Concomitant]
     Active Substance: COAL TAR
     Indication: PSORIASIS
     Dosage: AS REQUIRED
     Route: 065

REACTIONS (8)
  - Dry mouth [Unknown]
  - Device malfunction [Unknown]
  - Cough [Unknown]
  - Choking [Unknown]
  - Oropharyngeal discomfort [Unknown]
  - Product physical consistency issue [Unknown]
  - Product use issue [Unknown]
  - Intentional product misuse [Unknown]
